FAERS Safety Report 6134719-1 (Version None)
Quarter: 2009Q1

REPORT INFORMATION
  Report Type: 
  Country: None (occurrence: None)
  Receive Date: 20090325
  Receipt Date: 20090319
  Transmission Date: 20090719
  Serious: Yes (Other)
  Sender: FDA-Public Use
  Company Number: 188759ISR

PATIENT
  Age: 81 Year
  Sex: Female

DRUGS (3)
  1. WARFARIN [Suspect]
     Dosage: 1 MG, ORAL
     Route: 048
  2. ARNICA MONTANA [Suspect]
     Dosage: TOPICAL
     Route: 061
  3. DIETHYLAMINE SALICYLATE [Suspect]
     Dosage: TOPICAL
     Route: 061

REACTIONS (2)
  - DRUG INTERACTION [None]
  - INTERNATIONAL NORMALISED RATIO INCREASED [None]
